FAERS Safety Report 4542040-8 (Version None)
Quarter: 2004Q4

REPORT INFORMATION
  Report Type: 
  Country: None (occurrence: None)
  Receive Date: 20041227
  Receipt Date: 20041214
  Transmission Date: 20050328
  Serious: Yes (Other)
  Sender: FDA-Public Use
  Company Number: 2004114253

PATIENT
  Age: 59 Year
  Sex: Female
  Weight: 44.4525 kg

DRUGS (5)
  1. CELEBREX [Suspect]
     Indication: PAIN
     Dosage: 200 MG (200 MG, 1 IN 1 D), ORAL
     Route: 048
     Dates: start: 20040101
  2. HYDROMORPHONE HCL [Concomitant]
  3. CITALOPRAM HYDROBROMIDE [Concomitant]
  4. TEGAFUR (TEGAFUR) [Concomitant]
  5. ONDANSETRON HCL [Concomitant]

REACTIONS (4)
  - DYSPHAGIA [None]
  - HAEMOGLOBIN DECREASED [None]
  - MEDICATION ERROR [None]
  - THROAT TIGHTNESS [None]
